FAERS Safety Report 19818379 (Version 2)
Quarter: 2021Q4

REPORT INFORMATION
  Report Type: Spontaneous
  Country: JP (occurrence: JP)
  Receive Date: 20210911
  Receipt Date: 20211029
  Transmission Date: 20220303
  Serious: Yes (Hospitalization, Other)
  Sender: FDA-Public Use
  Company Number: JP-UNITED THERAPEUTICS-UNT-2018-009630

PATIENT
  Age: 46 Year
  Sex: Male
  Weight: 55 kg

DRUGS (7)
  1. REMODULIN [Suspect]
     Active Substance: TREPROSTINIL
     Indication: Pulmonary arterial hypertension
     Dosage: UNK UNK, CONTINUING
     Route: 058
     Dates: start: 20180327
  2. REMODULIN [Suspect]
     Active Substance: TREPROSTINIL
     Dosage: UNK UNK, CONTINUING (24 MCL/H)
     Route: 058
     Dates: start: 201804, end: 201804
  3. REMODULIN [Suspect]
     Active Substance: TREPROSTINIL
     Dosage: UNK UNK, CONTINUING (24.5 MCL/H)
     Route: 058
     Dates: start: 201804, end: 201804
  4. REMODULIN [Suspect]
     Active Substance: TREPROSTINIL
     Dosage: UNK UNK, CONTINUING (26.5 MCL/H)
     Route: 058
     Dates: start: 201804, end: 201804
  5. REMODULIN [Suspect]
     Active Substance: TREPROSTINIL
     Dosage: UNK UNK, CONTINUING (30 MCL/H)
     Route: 058
     Dates: start: 20180501, end: 20190709
  6. MACITENTAN [Concomitant]
     Active Substance: MACITENTAN
     Indication: Pulmonary arterial hypertension
     Dosage: UNK
     Route: 048
  7. TADALAFIL [Concomitant]
     Active Substance: TADALAFIL
     Indication: Pulmonary arterial hypertension
     Dosage: UNK
     Route: 048

REACTIONS (22)
  - Abdominal pain [Unknown]
  - Diarrhoea [Not Recovered/Not Resolved]
  - Pseudomembranous colitis [Not Recovered/Not Resolved]
  - Flushing [Unknown]
  - Haemoptysis [Unknown]
  - Influenza [Recovering/Resolving]
  - Flushing [Unknown]
  - Feeling hot [Unknown]
  - Vomiting [Recovered/Resolved]
  - Malaise [Unknown]
  - Nausea [Unknown]
  - Muscular weakness [Recovering/Resolving]
  - Sinusitis [Unknown]
  - Palpitations [Unknown]
  - Injection site induration [Unknown]
  - Injection site dryness [Unknown]
  - Injection site erythema [Unknown]
  - Injection site infection [Unknown]
  - Infusion site pain [Unknown]
  - Device occlusion [Unknown]
  - Clostridium test positive [Unknown]
  - Pyrexia [Not Recovered/Not Resolved]

NARRATIVE: CASE EVENT DATE: 20180101
